FAERS Safety Report 24392204 (Version 1)
Quarter: 2024Q4

REPORT INFORMATION
  Report Type: Spontaneous
  Country: CN (occurrence: CN)
  Receive Date: 20241003
  Receipt Date: 20241003
  Transmission Date: 20250114
  Serious: Yes (Other)
  Sender: SANDOZ
  Company Number: CN-002147023-NVSC2024CN192272

PATIENT
  Age: 75 Year
  Sex: Female
  Weight: 53 kg

DRUGS (2)
  1. DEXAMETHASONE\TOBRAMYCIN [Suspect]
     Active Substance: DEXAMETHASONE\TOBRAMYCIN
     Indication: Seasonal allergy
     Dosage: 1 DOSAGE FORM, BID
     Route: 047
     Dates: start: 20240207, end: 20240626
  2. PIRENOXINE SODIUM [Concomitant]
     Indication: Cataract
     Dosage: 1 DOSAGE FORM, QID
     Route: 047
     Dates: start: 20240203, end: 20240626

REACTIONS (3)
  - Xerophthalmia [Unknown]
  - Visual acuity reduced [Recovering/Resolving]
  - Tear film instability [Recovering/Resolving]

NARRATIVE: CASE EVENT DATE: 20240505
